FAERS Safety Report 12556558 (Version 7)
Quarter: 2018Q4

REPORT INFORMATION
  Report Type: Spontaneous
  Country: US (occurrence: US)
  Receive Date: 20160714
  Receipt Date: 20181102
  Transmission Date: 20190204
  Serious: Yes (Life-Threatening, Hospitalization)
  Sender: FDA-Public Use
  Company Number: US-PFIZER INC-2016332049

PATIENT
  Age: 61 Year
  Sex: Female

DRUGS (5)
  1. OLANZAPINE. [Interacting]
     Active Substance: OLANZAPINE
     Indication: NAUSEA
     Dosage: 10 MG, UNK, AT 3:15 PM
     Route: 048
  2. OLANZAPINE. [Interacting]
     Active Substance: OLANZAPINE
     Indication: VOMITING
  3. LORAZEPAM. [Suspect]
     Active Substance: LORAZEPAM
     Indication: NAUSEA
     Dosage: 1 MG, UNK, AT ABOUT 3:45 PM
     Route: 042
  4. LORAZEPAM. [Interacting]
     Active Substance: LORAZEPAM
     Dosage: UNK
  5. LORAZEPAM. [Interacting]
     Active Substance: LORAZEPAM
     Indication: NAUSEA
     Dosage: 1 MG, UNK, AT 1:00 PM
     Route: 048

REACTIONS (5)
  - Post-injection delirium sedation syndrome [Recovered/Resolved]
  - Intentional product use issue [Unknown]
  - Respiratory depression [Recovered/Resolved]
  - Drug interaction [Recovered/Resolved]
  - Hypotension [Recovered/Resolved]
